FAERS Safety Report 5002821-3 (Version None)
Quarter: 2006Q2

REPORT INFORMATION
  Report Type: 
  Country: None (occurrence: None)
  Receive Date: 20060512
  Receipt Date: 20060426
  Transmission Date: 20061013
  Serious: Yes (Death, Hospitalization)
  Sender: FDA-Public Use
  Company Number: US200604004560

PATIENT
  Age: 44 Year
  Sex: Female

DRUGS (2)
  1. ZYPREXA ZYDIS (OLANZAPINE) TABLET, DISPOSABLE [Suspect]
     Dosage: 20 MG, DAILY (1/D), ORAL
     Route: 048
  2. ZYPREXA [Suspect]
     Dosage: ORAL
     Route: 048

REACTIONS (4)
  - CARDIAC FAILURE [None]
  - DYSPHAGIA [None]
  - RENAL FAILURE [None]
  - SCLERODERMA [None]
